FAERS Safety Report 16316011 (Version 5)
Quarter: 2019Q3

REPORT INFORMATION
  Report Type: Spontaneous
  Country: US (occurrence: US)
  Receive Date: 20190515
  Receipt Date: 20190814
  Transmission Date: 20191004
  Serious: No
  Sender: FDA-Public Use
  Company Number: US-SA-2019SA126241

PATIENT
  Age: 81 Year
  Sex: Female
  Weight: 61.2 kg

DRUGS (2)
  1. PRALUENT [Suspect]
     Active Substance: ALIROCUMAB
     Indication: HYPERLIPIDAEMIA
  2. PRALUENT [Suspect]
     Active Substance: ALIROCUMAB
     Indication: LOW DENSITY LIPOPROTEIN INCREASED
     Dosage: 75 MG, QOW
     Dates: start: 20190501, end: 20190515

REACTIONS (7)
  - Arthralgia [Recovering/Resolving]
  - Myalgia [Recovering/Resolving]
  - Inflammation [Recovering/Resolving]
  - Arthritis [Unknown]
  - Product dose omission [Unknown]
  - Arthralgia [Unknown]
  - Gait disturbance [Not Recovered/Not Resolved]

NARRATIVE: CASE EVENT DATE: 20190503
